FAERS Safety Report 14595251 (Version 1)
Quarter: 2018Q1

REPORT INFORMATION
  Report Type: Spontaneous
  Country: US (occurrence: US)
  Receive Date: 20180302
  Receipt Date: 20180302
  Transmission Date: 20180509
  Serious: No
  Sender: FDA-Public Use
  Company Number: US-AKORN PHARMACEUTICALS-2017AKN01368

PATIENT
  Age: 22 Year
  Sex: Female
  Weight: 47.62 kg

DRUGS (2)
  1. MYORISAN [Suspect]
     Active Substance: ISOTRETINOIN
     Indication: ACNE
     Dosage: 30 MG, 1X/DAY
     Route: 048
     Dates: start: 20170921, end: 20171031
  2. MYORISAN [Suspect]
     Active Substance: ISOTRETINOIN
     Dosage: 30 MG, 1X/DAY
     Route: 048
     Dates: start: 201711, end: 20171109

REACTIONS (2)
  - Inappropriate schedule of drug administration [Recovered/Resolved]
  - Muscle injury [Recovered/Resolved]

NARRATIVE: CASE EVENT DATE: 2017
